FAERS Safety Report 5425147-2 (Version None)
Quarter: 2007Q3

REPORT INFORMATION
  Report Type: 
  Country: None (occurrence: None)
  Receive Date: 20070824
  Receipt Date: 20070813
  Transmission Date: 20080115
  Serious: Yes (Hospitalization)
  Sender: FDA-Public Use
  Company Number: FR-JNJFOC-20070804790

PATIENT
  Sex: Female

DRUGS (21)
  1. TRAMADOL HCL [Suspect]
     Indication: BACK PAIN
     Route: 048
  2. PROFENID [Suspect]
     Indication: BACK PAIN
     Route: 048
  3. LYRICA [Suspect]
     Indication: ALLODYNIA
     Route: 048
  4. CLONAZEPAM [Suspect]
     Indication: PAIN
     Dosage: 3 UNITS
     Route: 048
  5. ESOMEPRAZOLE MAGNESIUM [Suspect]
     Indication: DRUG USE FOR UNKNOWN INDICATION
     Route: 048
  6. NEURONTIN [Concomitant]
     Route: 065
  7. NEURONTIN [Concomitant]
     Route: 065
  8. NEURONTIN [Concomitant]
     Route: 065
  9. NEURONTIN [Concomitant]
     Indication: ALLODYNIA
     Route: 065
  10. PARACETAMOL [Concomitant]
     Route: 065
  11. PARACETAMOL [Concomitant]
     Route: 065
  12. IRBESARTAN [Concomitant]
     Route: 065
  13. PLAVIX [Concomitant]
     Route: 065
  14. METFORMINE [Concomitant]
     Route: 065
  15. METFORMINE [Concomitant]
     Route: 065
  16. ATHYMIL [Concomitant]
     Route: 065
  17. ATHYMIL [Concomitant]
     Route: 065
  18. BISOPROLOL [Concomitant]
     Route: 065
  19. BISOPROLOL [Concomitant]
     Route: 065
  20. LASIX [Concomitant]
     Route: 065
  21. LOXEN [Concomitant]
     Route: 065

REACTIONS (3)
  - ENCEPHALOPATHY [None]
  - HYPERAMMONAEMIA [None]
  - PULMONARY OEDEMA [None]
